FAERS Safety Report 24185396 (Version 1)
Quarter: 2024Q3

REPORT INFORMATION
  Report Type: Spontaneous
  Country: US (occurrence: US)
  Receive Date: 20240807
  Receipt Date: 20240807
  Transmission Date: 20241017
  Serious: Yes (Death)
  Sender: EISAI
  Company Number: US-Eisai-EC-2024-171494

PATIENT
  Age: 64 Year
  Sex: Male

DRUGS (3)
  1. LENVIMA [Suspect]
     Active Substance: LENVATINIB
     Indication: Renal cancer
     Route: 048
     Dates: start: 202407, end: 20240718
  2. LENVIMA [Suspect]
     Active Substance: LENVATINIB
     Dosage: DOSE REDUCED (DOSE AND FREQUENCY UNKNOWN)
     Route: 048
     Dates: start: 20240719
  3. ZORTRESS [Suspect]
     Active Substance: EVEROLIMUS
     Indication: Renal cancer
     Dosage: DOSE AND FREQUENCY UNKNOWN
     Route: 048
     Dates: start: 20240719

REACTIONS (1)
  - Death [Fatal]

NARRATIVE: CASE EVENT DATE: 20240801
